FAERS Safety Report 17870834 (Version 2)
Quarter: 2020Q2

REPORT INFORMATION
  Report Type: Other
  Country: DE (occurrence: DE)
  Receive Date: 20200608
  Receipt Date: 20200615
  Transmission Date: 20200714
  Serious: Yes (Disabling, Congenital Anomaly, Other)
  Sender: FDA-Public Use
  Company Number: DE-MACLEODS PHARMACEUTICALS US LTD-MAC2020026709

PATIENT

DRUGS (6)
  1. MOVICOL [Concomitant]
     Active Substance: POLYETHYLENE GLYCOL 3350\POTASSIUM CHLORIDE\SODIUM BICARBONATE\SODIUM CHLORIDE
     Indication: CONSTIPATION
     Dosage: UNK, 0. - 12.5. GESTATIONAL WEEK, MOVICOL HAD BEEN TAKEN UNTIL GW 12 5/7
     Route: 064
     Dates: start: 20190225, end: 20190525
  2. ABILIFY [Suspect]
     Active Substance: ARIPIPRAZOLE
     Indication: PSYCHOTIC DISORDER
     Dosage: 15 MILLIGRAM, QD, 0. - 39.2. GESTATIONAL WEEK
     Route: 064
     Dates: start: 20190225, end: 20191127
  3. CLEXANE [Concomitant]
     Active Substance: ENOXAPARIN SODIUM
     Indication: FACTOR V DEFICIENCY
     Dosage: 4000 INTERNATIONAL UNIT, QD, 34.3. - 39.2. GESTATIONAL WEEK
     Route: 064
     Dates: start: 20191024, end: 20191127
  4. QUETIAPINE. [Suspect]
     Active Substance: QUETIAPINE
     Dosage: 50 MILLIGRAM, QD, 150 [MG/D (TO 50) ]/ DOSAGE WAS SLOWLY REDUCED UNTIL GW 12 5/7
     Route: 064
     Dates: end: 20190525
  5. QUETIAPINE. [Suspect]
     Active Substance: QUETIAPINE
     Indication: PSYCHOTIC DISORDER
     Dosage: 150 MILLIGRAM, QD, 150 [MG/D (TO 50) ]/ DOSAGE WAS SLOWLY REDUCED UNTIL GW 12 5/7
     Route: 064
     Dates: start: 20190225
  6. FOLIO FORTE [Concomitant]
     Active Substance: FOLIC ACID\VITAMINS
     Indication: PROPHYLAXIS OF NEURAL TUBE DEFECT
     Dosage: 0.4MG, BID, 0.-39.2. GESTATIONAL WEEK, PROPHYLAXIS OF NEURAL TUBE DEFCT
     Route: 064
     Dates: start: 20190225, end: 20191127

REACTIONS (3)
  - Oxygen saturation decreased [Recovered/Resolved]
  - Pulmonary valve stenosis congenital [Unknown]
  - Foetal exposure during pregnancy [Unknown]

NARRATIVE: CASE EVENT DATE: 20191127
